FAERS Safety Report 16784063 (Version 1)
Quarter: 2019Q3

REPORT INFORMATION
  Report Type: Spontaneous
  Country: CN (occurrence: CN)
  Receive Date: 20190909
  Receipt Date: 20190909
  Transmission Date: 20191005
  Serious: Yes (Other)
  Sender: FDA-Public Use
  Company Number: CN-ROCHE-2404572

PATIENT
  Age: 69 Year
  Sex: Male

DRUGS (7)
  1. AVASTIN [Suspect]
     Active Substance: BEVACIZUMAB
     Indication: SARCOMATOID CARCINOMA OF THE LUNG
     Route: 065
     Dates: start: 20190404
  2. GEMCITABINE HYDROCHLORIDE. [Concomitant]
     Active Substance: GEMCITABINE HYDROCHLORIDE
     Indication: SARCOMATOID CARCINOMA OF THE LUNG
     Route: 065
     Dates: start: 20190416
  3. CISPLATIN. [Concomitant]
     Active Substance: CISPLATIN
     Indication: SARCOMATOID CARCINOMA OF THE LUNG
     Route: 065
     Dates: start: 20190322, end: 20190326
  4. CARBOPLATIN. [Concomitant]
     Active Substance: CARBOPLATIN
     Indication: SARCOMATOID CARCINOMA OF THE LUNG
     Route: 065
     Dates: start: 20190416
  5. PEMBROLIZUMAB. [Concomitant]
     Active Substance: PEMBROLIZUMAB
     Indication: SARCOMATOID CARCINOMA OF THE LUNG
     Route: 065
     Dates: start: 20190404
  6. IFOSFAMIDE. [Concomitant]
     Active Substance: IFOSFAMIDE
     Indication: SARCOMATOID CARCINOMA OF THE LUNG
     Route: 065
     Dates: start: 20190322, end: 20190326
  7. MESNA. [Concomitant]
     Active Substance: MESNA
     Indication: SARCOMATOID CARCINOMA OF THE LUNG
     Route: 065
     Dates: start: 20190322, end: 20190326

REACTIONS (4)
  - Bone marrow failure [Unknown]
  - Off label use [Unknown]
  - Hydrothorax [Unknown]
  - Intentional product use issue [Unknown]

NARRATIVE: CASE EVENT DATE: 20190422
